FAERS Safety Report 6612416-3 (Version None)
Quarter: 2010Q1

REPORT INFORMATION
  Report Type: 
  Country: None (occurrence: None)
  Receive Date: 20100303
  Receipt Date: 20100219
  Transmission Date: 20100710
  Serious: Yes (Other)
  Sender: FDA-Public Use
  Company Number: PHHY2010BR10088

PATIENT
  Age: 81 Year
  Sex: Female
  Weight: 56 kg

DRUGS (4)
  1. DIOVAN [Suspect]
     Indication: HYPERTENSION
     Dosage: 01 TABLET DAILY
     Route: 048
  2. ATENOLOL [Concomitant]
     Indication: HYPERTENSION
     Dosage: 50 MG (1 TABLET DAILY)
  3. SIMVASTATIN [Concomitant]
     Dosage: 10 MG (1 TABLET DAILY)
  4. VITALUX PLUS [Concomitant]
     Dosage: 5 MG
     Dates: start: 20100217

REACTIONS (2)
  - DIZZINESS [None]
  - RETINAL DEGENERATION [None]
